FAERS Safety Report 5041827-5 (Version None)
Quarter: 2006Q2

REPORT INFORMATION
  Report Type: 
  Country: None (occurrence: None)
  Receive Date: 20060630
  Receipt Date: 20060621
  Transmission Date: 20061013
  Serious: Yes (Hospitalization)
  Sender: FDA-Public Use
  Company Number: HQWYE772911APR06

PATIENT
  Age: 77 Year
  Sex: Female
  Weight: 61.2 kg

DRUGS (6)
  1. RAPAMUNE [Suspect]
     Indication: PROPHYLAXIS AGAINST TRANSPLANT REJECTION
     Dosage: 4 MG 1X PER 1 DAY, ORAL
     Route: 048
     Dates: start: 20060403
  2. RAPAMUNE [Suspect]
  3. COUMADIN [Suspect]
     Dates: end: 20060401
  4. ZENAPAX [Concomitant]
  5. MYCOPHENOLATE MOFETIL [Concomitant]
  6. CORTICOSTEROID NOS (CORTICOSTEROID NOS) [Concomitant]

REACTIONS (5)
  - ABDOMINAL PAIN LOWER [None]
  - ANAEMIA [None]
  - ARTERIOVENOUS MALFORMATION [None]
  - FAECES DISCOLOURED [None]
  - GASTROINTESTINAL HAEMORRHAGE [None]
